FAERS Safety Report 7551094-6 (Version None)
Quarter: 2011Q2

REPORT INFORMATION
  Report Type: 
  Country: None (occurrence: None)
  Receive Date: 20110616
  Receipt Date: 20110609
  Transmission Date: 20111010
  Serious: Yes (Other)
  Sender: FDA-Public Use
  Company Number: GB-NOVOPROD-329618

PATIENT
  Age: 67 Year
  Sex: Male

DRUGS (7)
  1. LISINOPRIL [Concomitant]
  2. BUPIVACAINE HCL [Concomitant]
     Dosage: 2.5 ML OF  HEAVY 0.5 %
  3. ALBUTEROL [Concomitant]
  4. MIXTARD HUMAN 70/30 [Suspect]
     Indication: PRODUCT USED FOR UNKNOWN INDICATION
  5. AMLODIPINE [Concomitant]
  6. GABAPENTIN [Concomitant]
  7. DIAMORPHINE [Concomitant]
     Dosage: 300 MCG

REACTIONS (1)
  - PHANTOM PAIN [None]
